FAERS Safety Report 21043711 (Version 2)
Quarter: 2022Q3

REPORT INFORMATION
  Report Type: Report from Study
  Country: US (occurrence: US)
  Receive Date: 20220705
  Receipt Date: 20220915
  Transmission Date: 20221026
  Serious: Yes (Other)
  Sender: FDA-Public Use
  Company Number: US-TAKEDA-2022TUS043709

PATIENT
  Sex: Female

DRUGS (81)
  1. TEDUGLUTIDE [Suspect]
     Active Substance: TEDUGLUTIDE
     Indication: Short-bowel syndrome
     Dosage: 3.9 MILLIGRAM, QD
     Route: 042
     Dates: start: 20150601, end: 20160608
  2. TEDUGLUTIDE [Suspect]
     Active Substance: TEDUGLUTIDE
     Indication: Short-bowel syndrome
     Dosage: 3.9 MILLIGRAM, QD
     Route: 042
     Dates: start: 20150601, end: 20160608
  3. TEDUGLUTIDE [Suspect]
     Active Substance: TEDUGLUTIDE
     Indication: Short-bowel syndrome
     Dosage: 3.9 MILLIGRAM, QD
     Route: 042
     Dates: start: 20150601, end: 20160608
  4. TEDUGLUTIDE [Suspect]
     Active Substance: TEDUGLUTIDE
     Indication: Short-bowel syndrome
     Dosage: 3.9 MILLIGRAM, QD
     Route: 042
     Dates: start: 20150601, end: 20160608
  5. TEDUGLUTIDE [Suspect]
     Active Substance: TEDUGLUTIDE
     Dosage: 3.8 MILLIGRAM, QD
     Route: 042
     Dates: start: 20170801
  6. TEDUGLUTIDE [Suspect]
     Active Substance: TEDUGLUTIDE
     Dosage: 3.8 MILLIGRAM, QD
     Route: 042
     Dates: start: 20170801
  7. TEDUGLUTIDE [Suspect]
     Active Substance: TEDUGLUTIDE
     Dosage: 3.8 MILLIGRAM, QD
     Route: 042
     Dates: start: 20170801
  8. TEDUGLUTIDE [Suspect]
     Active Substance: TEDUGLUTIDE
     Dosage: 3.8 MILLIGRAM, QD
     Route: 042
     Dates: start: 20170801
  9. VEDOLIZUMAB [Concomitant]
     Active Substance: VEDOLIZUMAB
     Indication: Crohn^s disease
     Dosage: 300 MILLIGRAM
     Route: 042
     Dates: start: 20170111
  10. FAMOTIDINE [Concomitant]
     Active Substance: FAMOTIDINE
     Indication: Prophylaxis
     Dosage: 20 MILLIGRAM, BID
     Route: 048
     Dates: start: 20181030, end: 20181129
  11. FAMOTIDINE [Concomitant]
     Active Substance: FAMOTIDINE
     Indication: Gastrooesophageal reflux disease
     Dosage: 20 MILLIGRAM, BID
     Route: 048
     Dates: start: 20180415, end: 20180415
  12. FAMOTIDINE [Concomitant]
     Active Substance: FAMOTIDINE
     Indication: Blood iron
     Dosage: 20 MILLIGRAM, BID
     Route: 048
     Dates: start: 20200205, end: 20200205
  13. HYDROCORTISONE ENEMA [Concomitant]
     Indication: Rectal haemorrhage
     Dosage: 100 MILLIGRAM, QD
     Route: 054
     Dates: start: 20190220, end: 20190313
  14. MIDAZOLAM [Concomitant]
     Active Substance: MIDAZOLAM
     Indication: Feeling of relaxation
     Dosage: UNK UNK, SINGLE
     Route: 042
     Dates: start: 20171231, end: 20171231
  15. MIDAZOLAM [Concomitant]
     Active Substance: MIDAZOLAM
     Dosage: 5 MILLIGRAM, SINGLE
     Route: 042
     Dates: start: 20180507, end: 20180507
  16. MIDAZOLAM [Concomitant]
     Active Substance: MIDAZOLAM
     Dosage: 1 MILLIGRAM, SINGLE
     Route: 042
     Dates: start: 20171231, end: 20171231
  17. MIDAZOLAM [Concomitant]
     Active Substance: MIDAZOLAM
     Dosage: 1 MILLIGRAM, SINGLE
     Route: 042
     Dates: start: 20180507, end: 20180507
  18. FENTANYL [Concomitant]
     Active Substance: FENTANYL
     Indication: Analgesic therapy
     Dosage: UNK UNK, SINGLE
     Route: 042
     Dates: start: 20171231, end: 20171231
  19. FENTANYL [Concomitant]
     Active Substance: FENTANYL
     Dosage: 50 MICROGRAM, SINGLE
     Route: 042
     Dates: start: 20180507, end: 20180507
  20. FENTANYL [Concomitant]
     Active Substance: FENTANYL
     Dosage: 50 MICROGRAM, SINGLE
     Route: 042
     Dates: start: 20171231, end: 20171231
  21. FENTANYL [Concomitant]
     Active Substance: FENTANYL
     Dosage: 100 MICROGRAM, SINGLE
     Route: 042
     Dates: start: 20180507, end: 20180507
  22. SODIUM CHLORIDE [Concomitant]
     Active Substance: SODIUM CHLORIDE
     Indication: Medication dilution
     Dosage: 100 MILLIGRAM, SINGLE
     Route: 058
     Dates: start: 20180227, end: 20180227
  23. SODIUM CHLORIDE [Concomitant]
     Active Substance: SODIUM CHLORIDE
     Indication: Dehydration
     Dosage: 4 MILLILITER, SINGLE
     Route: 058
     Dates: start: 20180413, end: 20180413
  24. SODIUM CHLORIDE [Concomitant]
     Active Substance: SODIUM CHLORIDE
     Dosage: 1000 MILLIGRAM, SINGLE
     Route: 058
     Dates: start: 20180504, end: 20180504
  25. SODIUM CHLORIDE [Concomitant]
     Active Substance: SODIUM CHLORIDE
     Dosage: 1000 MILLIGRAM, SINGLE
     Route: 058
     Dates: start: 20180531, end: 20180531
  26. SODIUM CHLORIDE [Concomitant]
     Active Substance: SODIUM CHLORIDE
     Dosage: 250 MILLIGRAM, SINGLE
     Route: 042
     Dates: start: 20200205, end: 20200205
  27. SODIUM CHLORIDE [Concomitant]
     Active Substance: SODIUM CHLORIDE
     Dosage: 250 MILLIGRAM, SINGLE
     Route: 042
     Dates: start: 20200616, end: 20200616
  28. ONDANSETRON [Concomitant]
     Active Substance: ONDANSETRON
     Indication: Nausea
     Dosage: 4 MILLIGRAM, TID
     Route: 042
     Dates: start: 20180413, end: 20180413
  29. ONDANSETRON [Concomitant]
     Active Substance: ONDANSETRON
     Indication: Vomiting
     Dosage: 4 MILLIGRAM, TID
     Route: 042
     Dates: start: 20180504, end: 20180504
  30. ONDANSETRON [Concomitant]
     Active Substance: ONDANSETRON
     Dosage: 4 MILLIGRAM, TID
     Route: 042
     Dates: start: 20180504, end: 20180507
  31. ONDANSETRON [Concomitant]
     Active Substance: ONDANSETRON
     Dosage: 4 MILLIGRAM, SINGLE
     Route: 042
     Dates: start: 20180531, end: 20180531
  32. ONDANSETRON [Concomitant]
     Active Substance: ONDANSETRON
     Dosage: 4 MILLIGRAM, SINGLE
     Route: 042
     Dates: start: 20180504, end: 20180505
  33. LIDOCAINE [Concomitant]
     Active Substance: LIDOCAINE
     Indication: Catheter placement
     Dosage: 1 MILLILITER, SINGLE
     Route: 058
     Dates: start: 20180413, end: 20180413
  34. GABAPENTIN [Concomitant]
     Active Substance: GABAPENTIN
     Indication: Surgery
     Dosage: 300 MILLIGRAM, SINGLE
     Route: 048
     Dates: start: 20180413, end: 20180413
  35. BUPIVACAINE [Concomitant]
     Active Substance: BUPIVACAINE
     Indication: Anaesthetic complication
     Dosage: 1.25 MILLIGRAM, SINGLE
     Route: 008
     Dates: start: 20180413, end: 20180413
  36. ACETAMINOPHEN [Concomitant]
     Active Substance: ACETAMINOPHEN
     Indication: Pain
     Dosage: 975 MILLIGRAM, SINGLE
     Route: 048
     Dates: start: 20180413, end: 20180413
  37. ACETAMINOPHEN [Concomitant]
     Active Substance: ACETAMINOPHEN
     Dosage: 10 MILLIGRAM/KILOGRAM, QID
     Route: 048
     Dates: start: 20180507, end: 20180521
  38. ACETAMINOPHEN [Concomitant]
     Active Substance: ACETAMINOPHEN
     Dosage: 640 MILLIGRAM/KILOGRAM, QID
     Route: 048
     Dates: start: 20180601, end: 20180604
  39. ACETAMINOPHEN [Concomitant]
     Active Substance: ACETAMINOPHEN
     Dosage: 20 MILLILITER, QID
     Route: 048
     Dates: start: 20180601, end: 20180601
  40. ACETAMINOPHEN [Concomitant]
     Active Substance: ACETAMINOPHEN
     Dosage: 650 MILLIGRAM, SINGLE
     Route: 048
     Dates: start: 20200205, end: 20200205
  41. ACETAMINOPHEN [Concomitant]
     Active Substance: ACETAMINOPHEN
     Dosage: 650 MILLIGRAM, SINGLE
     Route: 048
     Dates: start: 20200616, end: 20200616
  42. MAGNESIUM SULFATE [Concomitant]
     Active Substance: MAGNESIUM SULFATE
     Indication: Magnesium deficiency
     Dosage: 2 GRAM, SINGLE
     Route: 042
     Dates: start: 20180414, end: 20180414
  43. MAGNESIUM SULFATE [Concomitant]
     Active Substance: MAGNESIUM SULFATE
     Dosage: 2 GRAM, SINGLE
     Route: 042
     Dates: start: 20180416, end: 20180416
  44. POTASSIUM CHLORIDE [Concomitant]
     Active Substance: POTASSIUM CHLORIDE
     Indication: Blood potassium decreased
     Dosage: 40 UNK
     Route: 042
     Dates: start: 20180415, end: 20180415
  45. OXYCODONE [Concomitant]
     Active Substance: OXYCODONE
     Indication: Pain
     Dosage: 5 MILLIGRAM
     Route: 048
     Dates: start: 20180415, end: 20180422
  46. OXYCODONE [Concomitant]
     Active Substance: OXYCODONE
     Dosage: 5 MILLIGRAM
     Route: 048
     Dates: start: 20180507, end: 20180514
  47. OXYCODONE [Concomitant]
     Active Substance: OXYCODONE
     Dosage: 5 MILLIGRAM, BID
     Route: 048
     Dates: start: 20180730, end: 20180730
  48. CEPHALEXIN [Concomitant]
     Active Substance: CEPHALEXIN
     Indication: Infection prophylaxis
     Dosage: 500 MILLIGRAM, QID
     Route: 048
     Dates: start: 20180415, end: 20180422
  49. METRONIDAZOLE [Concomitant]
     Active Substance: METRONIDAZOLE
     Indication: Abdominal infection
     Dosage: 500 MILLIGRAM, SINGLE
     Route: 042
     Dates: start: 20180504, end: 20180504
  50. HYDROMORPHONE [Concomitant]
     Active Substance: HYDROMORPHONE
     Indication: Pain
     Dosage: 1 MILLIGRAM, SINGLE
     Route: 042
     Dates: start: 20180504, end: 20180504
  51. HYDROMORPHONE [Concomitant]
     Active Substance: HYDROMORPHONE
     Dosage: 0.5 MILLIGRAM, SINGLE
     Route: 042
     Dates: start: 20180504, end: 20180504
  52. HYDROMORPHONE [Concomitant]
     Active Substance: HYDROMORPHONE
     Dosage: 0.5 MILLIGRAM, SINGLE
     Route: 042
     Dates: start: 20180507, end: 20180507
  53. HYDROMORPHONE [Concomitant]
     Active Substance: HYDROMORPHONE
     Dosage: 1 MILLIGRAM, SINGLE
     Route: 042
     Dates: start: 20180507, end: 20180507
  54. HYDROMORPHONE [Concomitant]
     Active Substance: HYDROMORPHONE
     Dosage: 10 MICROGRAM, SINGLE
     Route: 042
     Dates: start: 20180507, end: 20180507
  55. HYDROMORPHONE [Concomitant]
     Active Substance: HYDROMORPHONE
     Dosage: 0.5 MILLIGRAM, SINGLE
     Route: 042
     Dates: start: 20180504, end: 20180504
  56. CEFEPIME [Concomitant]
     Active Substance: CEFEPIME HYDROCHLORIDE
     Indication: Gastrointestinal disorder
     Dosage: 2 GRAM, SINGLE
     Route: 042
     Dates: start: 20180504, end: 20180504
  57. CYANOCOBALAMIN [Concomitant]
     Active Substance: CYANOCOBALAMIN
     Indication: Vitamin B12 deficiency
     Dosage: 1000 MICROGRAM, MONTHLY
     Route: 030
     Dates: start: 20180505, end: 20180505
  58. OXYBUTYNIN [Concomitant]
     Active Substance: OXYBUTYNIN
     Indication: Bladder disorder
     Dosage: 5 MILLIGRAM, QID
     Route: 048
     Dates: start: 20180507, end: 20180514
  59. HEPARIN [Concomitant]
     Active Substance: HEPARIN SODIUM
     Dosage: 4000 INTERNATIONAL UNIT, SINGLE
     Route: 042
     Dates: start: 20180507, end: 20180507
  60. DIPHENHYDRAMINE [Concomitant]
     Active Substance: DIPHENHYDRAMINE
     Indication: Prophylaxis
     Dosage: 50 MILLIGRAM, SINGLE
     Dates: start: 20180507, end: 20180507
  61. DIPHENHYDRAMINE [Concomitant]
     Active Substance: DIPHENHYDRAMINE
     Dosage: 25 MILLIGRAM, SINGLE
     Dates: start: 20200205, end: 20200205
  62. DIPHENHYDRAMINE [Concomitant]
     Active Substance: DIPHENHYDRAMINE
     Dosage: 25 MILLIGRAM, SINGLE
     Route: 048
     Dates: start: 20200616, end: 20200616
  63. CIPROFLOXACIN [Concomitant]
     Active Substance: CIPROFLOXACIN
     Indication: Infection
     Dosage: 500 MILLIGRAM, BID
     Route: 048
     Dates: start: 20180507, end: 20180507
  64. BACITRACIN [Concomitant]
     Active Substance: BACITRACIN
     Indication: Skin infection
     Dosage: 500 INTERNATIONAL UNIT
     Route: 061
     Dates: start: 20180507, end: 20180528
  65. ALTEPLASE [Concomitant]
     Active Substance: ALTEPLASE
     Indication: Thrombosis
     Dosage: 4 MILLIGRAM, SINGLE
     Route: 037
     Dates: start: 20180507, end: 20180507
  66. IRON SUCROSE [Concomitant]
     Active Substance: IRON SUCROSE
     Indication: Iron deficiency
     Dosage: 100 MILLIGRAM, SINGLE
     Route: 042
     Dates: start: 20180227, end: 20180227
  67. TPN [Concomitant]
     Active Substance: AMINO ACIDS\DEXTROSE\ELECTROLYTES NOS\SOYBEAN OIL
     Indication: Nutritional supplementation
     Dosage: 1080 MILLILITER
     Route: 042
     Dates: start: 20180415, end: 20180415
  68. ERGOCALCIFEROL [Concomitant]
     Active Substance: ERGOCALCIFEROL
     Indication: Vitamin D decreased
     Dosage: 50000 INTERNATIONAL UNIT, 1/WEEK
     Route: 048
     Dates: start: 20191122, end: 20200710
  69. ERGOCALCIFEROL [Concomitant]
     Active Substance: ERGOCALCIFEROL
     Dosage: 50000 INTERNATIONAL UNIT
     Route: 048
     Dates: start: 20200710, end: 20201013
  70. ERGOCALCIFEROL [Concomitant]
     Active Substance: ERGOCALCIFEROL
     Dosage: 50000 INTERNATIONAL UNIT, 2/WEEK
     Route: 048
     Dates: start: 20201015, end: 20201019
  71. ERGOCALCIFEROL [Concomitant]
     Active Substance: ERGOCALCIFEROL
     Dosage: 50000 INTERNATIONAL UNIT, 3/WEEK
     Route: 048
     Dates: start: 20201019
  72. IOPAMIDOL [Concomitant]
     Active Substance: IOPAMIDOL
     Indication: Contrast media allergy
     Dosage: 150 MILLILITER, SINGLE
     Route: 042
     Dates: start: 20200117, end: 20200117
  73. IOPAMIDOL [Concomitant]
     Active Substance: IOPAMIDOL
     Dosage: 150 MILLILITER, SINGLE
     Route: 042
     Dates: start: 20200624, end: 20200624
  74. ENOXAPARIN [Concomitant]
     Active Substance: ENOXAPARIN
     Indication: Anticoagulant therapy
     Dosage: 80 MILLIGRAM, BID
     Route: 058
     Dates: start: 20200129
  75. INFED [Concomitant]
     Active Substance: IRON DEXTRAN
     Indication: Iron deficiency
     Dosage: 500 MILLIGRAM, SINGLE
     Route: 042
     Dates: start: 20200205, end: 20200205
  76. INFED [Concomitant]
     Active Substance: IRON DEXTRAN
     Dosage: 500 MILLIGRAM, SINGLE
     Route: 042
     Dates: start: 20200616, end: 20200616
  77. NORETHINDRONE [Concomitant]
     Active Substance: NORETHINDRONE
     Indication: Hormone therapy
     Dosage: 5 MILLIGRAM, QD
     Route: 048
     Dates: start: 20200423
  78. ESTRADIOL [Concomitant]
     Active Substance: ESTRADIOL
     Indication: Menopause
     Dosage: UNK UNK, 2/WEEK
     Route: 062
     Dates: start: 20200528
  79. GLUCAGON [Concomitant]
     Active Substance: GLUCAGON
     Indication: Diabetes mellitus
     Dosage: 1 MILLIGRAM, SINGLE
     Route: 030
     Dates: start: 20200529, end: 20200529
  80. MULTIHANCE [Concomitant]
     Active Substance: GADOBENATE DIMEGLUMINE
     Indication: Contrast media reaction
     Dosage: 16 MILLIGRAM, SINGLE
     Route: 042
     Dates: start: 20200529, end: 20200529
  81. TRIAMCINOLONE [Concomitant]
     Active Substance: TRIAMCINOLONE
     Indication: Product used for unknown indication
     Dosage: UNK
     Route: 061
     Dates: start: 20210205

REACTIONS (2)
  - Abortion spontaneous [Unknown]
  - Pregnancy [Unknown]
